FAERS Safety Report 4955813-4 (Version None)
Quarter: 2006Q1

REPORT INFORMATION
  Report Type: 
  Country: None (occurrence: None)
  Receive Date: 20060323
  Receipt Date: 20060307
  Transmission Date: 20060701
  Serious: Yes (Death, Hospitalization)
  Sender: FDA-Public Use
  Company Number: WAES 05101TA00021

PATIENT
  Age: 65 Year
  Sex: Male

DRUGS (7)
  1. VIOXX [Suspect]
     Indication: LUNG NEOPLASM MALIGNANT
     Dosage: 50 MG/DAILY PO
     Route: 048
     Dates: start: 20040407, end: 20040414
  2. VIOXX [Suspect]
     Indication: LUNG NEOPLASM MALIGNANT
     Dosage: 50 MG/DAILY PO
     Route: 048
     Dates: start: 20040505, end: 20040511
  3. VIOXX [Suspect]
     Indication: LUNG NEOPLASM MALIGNANT
     Dosage: 50 MG/DAILY PO
     Route: 048
     Dates: start: 20040607
  4. CISPLATIN [Concomitant]
  5. EPOETIN ALFA [Concomitant]
  6. FILGRASTIM [Concomitant]
  7. GEMCITABINE [Concomitant]

REACTIONS (5)
  - CEREBRAL HAEMORRHAGE [None]
  - CEREBROVASCULAR ACCIDENT [None]
  - GENERAL PHYSICAL HEALTH DETERIORATION [None]
  - METASTASES TO ADRENALS [None]
  - METASTASES TO LIVER [None]
